FAERS Safety Report 5056347-1 (Version None)
Quarter: 2006Q3

REPORT INFORMATION
  Report Type: 
  Country: None (occurrence: None)
  Receive Date: 20060717
  Receipt Date: 20060703
  Transmission Date: 20061208
  Serious: Yes (Other)
  Sender: FDA-Public Use
  Company Number: HQWYE550325MAY06

PATIENT
  Age: 31 Year
  Sex: Female

DRUGS (6)
  1. RAPAMUNE [Suspect]
     Indication: PROPHYLAXIS AGAINST TRANSPLANT REJECTION
     Dosage: 2 MG 1X PER 1 DAY ; 4X MG 1X PER 1 DAY
     Route: 048
     Dates: start: 20050614, end: 20060523
  2. RAPAMUNE [Suspect]
     Indication: PROPHYLAXIS AGAINST TRANSPLANT REJECTION
     Dosage: 2 MG 1X PER 1 DAY ; 4X MG 1X PER 1 DAY
     Route: 048
     Dates: start: 20060524, end: 20060628
  3. PREDNISONE TAB [Concomitant]
  4. SULFAMETHOXAZOLE + TRIMETHOPRIM [Concomitant]
  5. SIMVASTATIN [Concomitant]
  6. ATENOLOL [Concomitant]

REACTIONS (3)
  - CHRONIC ALLOGRAFT NEPHROPATHY [None]
  - HAEMATOCRIT DECREASED [None]
  - MICROANGIOPATHY [None]
